FAERS Safety Report 8417589-8 (Version None)
Quarter: 2012Q2

REPORT INFORMATION
  Report Type: 
  Country: None (occurrence: None)
  Receive Date: 20120606
  Receipt Date: 20120426
  Transmission Date: 20120825
  Serious: Yes (Other)
  Sender: FDA-Public Use
  Company Number: CHPA2012US011367

PATIENT
  Sex: Female

DRUGS (1)
  1. PHENYLEPHRINE HCL [Suspect]
     Indication: DYSPNOEA
     Dosage: 1SPRAY, QH
     Route: 045
     Dates: start: 20020101

REACTIONS (6)
  - UNDERDOSE [None]
  - DRUG DEPENDENCE [None]
  - OVERDOSE [None]
  - UPPER RESPIRATORY TRACT CONGESTION [None]
  - INAPPROPRIATE SCHEDULE OF DRUG ADMINISTRATION [None]
  - OFF LABEL USE [None]
